FAERS Safety Report 8482137-3 (Version None)
Quarter: 2012Q3

REPORT INFORMATION
  Report Type: 
  Country: None (occurrence: None)
  Receive Date: 20120702
  Receipt Date: 20120627
  Transmission Date: 20120928
  Serious: Yes (Other)
  Sender: FDA-Public Use
  Company Number: CO-PFIZER INC-2012127123

PATIENT
  Age: 59 Year
  Sex: Male

DRUGS (2)
  1. ZITHROMAX [Suspect]
     Indication: TONSILLITIS BACTERIAL
  2. ZITHROMAX [Suspect]
     Indication: PHARYNGITIS BACTERIAL
     Dosage: 500 MG FOR 5 DAYS
     Route: 048
     Dates: start: 20120516

REACTIONS (2)
  - COUNTERFEIT DRUG ADMINISTERED [None]
  - BACTERIAL INFECTION [None]
